FAERS Safety Report 21303274 (Version 6)
Quarter: 2023Q1

REPORT INFORMATION
  Report Type: Report from Study
  Country: US (occurrence: US)
  Receive Date: 20220907
  Receipt Date: 20230222
  Transmission Date: 20230417
  Serious: Yes (Other)
  Sender: FDA-Public Use
  Company Number: US-AMGEN-USACT2022150981

PATIENT
  Age: 68 Year
  Sex: Female
  Weight: 86.4 kg

DRUGS (6)
  1. EMIRODATAMAB [Suspect]
     Active Substance: EMIRODATAMAB
     Indication: Acute myeloid leukaemia
     Dosage: 2.7 MICROGRAM
     Route: 040
     Dates: start: 20220829, end: 20220830
  2. EMIRODATAMAB [Suspect]
     Active Substance: EMIRODATAMAB
     Dosage: 150 UNK
     Route: 040
  3. EMIRODATAMAB [Suspect]
     Active Substance: EMIRODATAMAB
     Dosage: UNK
     Route: 040
     Dates: start: 20220906
  4. DEXAMETHASONE [Concomitant]
     Active Substance: DEXAMETHASONE
     Indication: Cytokine release syndrome
     Dosage: 8 MILLIGRAM
     Route: 042
     Dates: start: 20220829
  5. TOCILIZUMAB [Concomitant]
     Active Substance: TOCILIZUMAB
     Indication: Cytokine release syndrome
     Dosage: 8 MILLIGRAM/KILOGRAM
     Route: 042
     Dates: start: 20220829, end: 20220910
  6. TYLENOL [Concomitant]
     Active Substance: ACETAMINOPHEN
     Dosage: 1000 MILLIGRAM
     Route: 048
     Dates: start: 20220829, end: 20220829

REACTIONS (1)
  - Hyperbilirubinaemia [Recovered/Resolved]

NARRATIVE: CASE EVENT DATE: 20220830
